FAERS Safety Report 10094173 (Version 1)
Quarter: 2014Q2

REPORT INFORMATION
  Report Type: Spontaneous
  Country: MX (occurrence: MX)
  Receive Date: 20140422
  Receipt Date: 20140422
  Transmission Date: 20141212
  Serious: Yes (Hospitalization, Other)
  Sender: FDA-Public Use
  Company Number: MX-ROCHE-1384048

PATIENT
  Age: 5 Year
  Sex: Male

DRUGS (7)
  1. TRETINOIN [Suspect]
     Indication: ACUTE PROMYELOCYTIC LEUKAEMIA
     Route: 065
  2. DAUNORUBICIN [Suspect]
     Indication: ACUTE PROMYELOCYTIC LEUKAEMIA
     Route: 065
  3. DAUNORUBICIN [Suspect]
     Route: 065
  4. MITOXANTRONE [Suspect]
     Indication: ACUTE PROMYELOCYTIC LEUKAEMIA
     Route: 065
  5. METHOTREXATE [Suspect]
     Indication: ACUTE PROMYELOCYTIC LEUKAEMIA
     Route: 065
  6. MERCAPTOPURINE [Suspect]
     Indication: ACUTE PROMYELOCYTIC LEUKAEMIA
     Route: 065
  7. DEXAMETHASONE [Concomitant]
     Indication: RETINOIC ACID SYNDROME
     Route: 065

REACTIONS (4)
  - Retinoic acid syndrome [Unknown]
  - Headache [Unknown]
  - Dyspnoea [Unknown]
  - Febrile neutropenia [Unknown]
